FAERS Safety Report 5741232-X (Version None)
Quarter: 2008Q2

REPORT INFORMATION
  Report Type: 
  Country: None (occurrence: None)
  Receive Date: 20080514
  Receipt Date: 20080430
  Transmission Date: 20081010
  Serious: Yes (Other)
  Sender: FDA-Public Use
  Company Number: 2008AL003140

PATIENT
  Sex: Female

DRUGS (1)
  1. DIGOXIN [Suspect]

REACTIONS (1)
  - CARDIAC ARREST [None]
